FAERS Safety Report 12761527 (Version 1)
Quarter: 2016Q3

REPORT INFORMATION
  Report Type: Spontaneous
  Country: GB (occurrence: GB)
  Receive Date: 20160920
  Receipt Date: 20160920
  Transmission Date: 20161109
  Serious: Yes (Death, Life-Threatening, Hospitalization)
  Sender: FDA-Public Use
  Company Number: GB-ACCORD-044027

PATIENT
  Age: 87 Year
  Sex: Female

DRUGS (11)
  1. OMEPRAZOLE. [Concomitant]
     Active Substance: OMEPRAZOLE
  2. FUROSEMIDE. [Concomitant]
     Active Substance: FUROSEMIDE
  3. ASACOL [Concomitant]
     Active Substance: MESALAMINE
  4. SALBUTAMOL/SALBUTAMOL SULFATE [Concomitant]
     Route: 055
  5. CETIRIZINE [Concomitant]
     Active Substance: CETIRIZINE HYDROCHLORIDE
  6. CETRABEN [Concomitant]
     Active Substance: PARAFFIN
     Dosage: EMOLLIENT CREAM
  7. CODEINE PHOSPHATE/PARACETAMOL [Concomitant]
     Dosage: 15/500MG AS NEEDED.
  8. MONTELUKAST [Suspect]
     Active Substance: MONTELUKAST SODIUM
     Indication: ASTHMA
     Dosage: IN EVENING
     Route: 048
     Dates: start: 201601
  9. BECLOMETASONE [Concomitant]
     Active Substance: BECLOMETHASONE DIPROPIONATE
     Route: 045
  10. GABAPENTIN. [Concomitant]
     Active Substance: GABAPENTIN
  11. PREDNISOLONE. [Suspect]
     Active Substance: PREDNISOLONE
     Indication: PRODUCT USED FOR UNKNOWN INDICATION
     Dosage: REDUCING REGIME STARTED BY DERMATOLOGIST 25 MG REDUCING BY 5MG EVERY 3 DAYS TO ZERO.
     Route: 048
     Dates: start: 201606

REACTIONS (3)
  - Dyspnoea [Not Recovered/Not Resolved]
  - Eosinophilic granulomatosis with polyangiitis [Fatal]
  - Malaise [Not Recovered/Not Resolved]

NARRATIVE: CASE EVENT DATE: 20160701
